FAERS Safety Report 7740497-2 (Version None)
Quarter: 2011Q3

REPORT INFORMATION
  Report Type: 
  Country: None (occurrence: None)
  Receive Date: 20110909
  Receipt Date: 20110906
  Transmission Date: 20111222
  Serious: Yes (Life-Threatening, Hospitalization)
  Sender: FDA-Public Use
  Company Number: US-B.I. PHARMACEUTICALS,INC./RIDGEFIELD-2011-BP-21475BP

PATIENT
  Age: 93 Year
  Sex: Female
  Weight: 76.7 kg

DRUGS (12)
  1. SODIUM PHOSPAHTES [Concomitant]
     Dosage: 133 ML
  2. NAMENDA [Concomitant]
     Dosage: 5 MG
     Route: 048
  3. TYLENOL-500 [Concomitant]
     Dosage: 325 MG
     Route: 048
  4. PRADAXA [Suspect]
     Indication: ATRIAL FIBRILLATION
     Dosage: 150 MG
     Dates: start: 20110722, end: 20110809
  5. TENORMIN [Concomitant]
     Dosage: 12.5 MG
     Route: 048
  6. ISORDIL [Concomitant]
     Dosage: 10 MG
     Route: 048
  7. TIAZAC [Concomitant]
     Dosage: 120 MG
     Route: 048
  8. ASPIRIN [Concomitant]
     Dosage: 81 MG
     Dates: start: 20110722, end: 20110809
  9. SYNTHROID [Concomitant]
     Dosage: 100 MG
     Route: 048
  10. ZOCOR [Concomitant]
     Dosage: 10 MG
     Route: 048
  11. BISCOLAX [Concomitant]
     Dosage: 10 MG
  12. CATAPRES [Concomitant]
     Dosage: 0.2 MG
     Route: 048

REACTIONS (4)
  - HAEMATOCHEZIA [None]
  - HAEMATURIA [None]
  - GASTROINTESTINAL HAEMORRHAGE [None]
  - ABDOMINAL PAIN LOWER [None]
